FAERS Safety Report 17190893 (Version 1)
Quarter: 2019Q4

REPORT INFORMATION
  Report Type: Spontaneous
  Country: FR (occurrence: FR)
  Receive Date: 20191223
  Receipt Date: 20191223
  Transmission Date: 20200122
  Serious: Yes (Life-Threatening)
  Sender: FDA-Public Use
  Company Number: FR-009507513-1912FRA007741

PATIENT
  Age: 50 Year
  Sex: Female

DRUGS (3)
  1. RIFADIN [Suspect]
     Active Substance: RIFAMPIN
     Indication: HIDRADENITIS
     Dosage: 900 MILLIGRAM, QD
     Route: 048
     Dates: start: 20190802, end: 20190812
  2. DALACINE [Suspect]
     Active Substance: CLINDAMYCIN
     Indication: HIDRADENITIS
     Dosage: 2400 MILLIGRAM, QD
     Route: 048
     Dates: start: 20190726, end: 20190812
  3. STROMECTOL [Suspect]
     Active Substance: IVERMECTIN
     Indication: ACNE
     Dosage: 6 DOSAGE FORM, TOTAL
     Route: 048
     Dates: start: 20190810, end: 20190810

REACTIONS (6)
  - Pruritus [Recovered/Resolved]
  - Erythema [Recovered/Resolved]
  - Abdominal pain [Recovered/Resolved]
  - Anaphylactic shock [Recovered/Resolved]
  - Oedema peripheral [Recovered/Resolved]
  - Vomiting [Recovered/Resolved]

NARRATIVE: CASE EVENT DATE: 20190811
